FAERS Safety Report 9261351 (Version 3)
Quarter: 2013Q4

REPORT INFORMATION
  Report Type: Report from Study
  Country: IL (occurrence: IL)
  Receive Date: 20130429
  Receipt Date: 20131002
  Transmission Date: 20140711
  Serious: Yes (Hospitalization)
  Sender: FDA-Public Use
  Company Number: IL-GLAXOSMITHKLINE-Z0019177E

PATIENT
  Age: 69 Year
  Sex: Female

DRUGS (1)
  1. ELTROMBOPAG [Suspect]
     Indication: THROMBOCYTOPENIA
     Route: 048
     Dates: start: 20130324, end: 20130418

REACTIONS (2)
  - Acute myeloid leukaemia [Not Recovered/Not Resolved]
  - Bone pain [Not Recovered/Not Resolved]
